FAERS Safety Report 4867725-5 (Version None)
Quarter: 2005Q4

REPORT INFORMATION
  Report Type: 
  Country: None (occurrence: None)
  Receive Date: 20051222
  Receipt Date: 20051222
  Transmission Date: 20060501
  Serious: Yes (Death)
  Sender: FDA-Public Use
  Company Number: None

PATIENT
  Age: 64 Year
  Sex: Male
  Weight: 34.4734 kg

DRUGS (7)
  1. OXALIPLATIN [Suspect]
     Indication: METASTATIC GASTRIC CANCER
     Dosage: 85 MG/M2
     Dates: start: 20051116
  2. TAXOTERE [Suspect]
     Dosage: 25 MG/M2
     Dates: start: 20051213
  3. FLOXURIDINE [Suspect]
     Dosage: 110 MG/KG
     Dates: start: 20051129
  4. LEUCOVORIN (LV) [Suspect]
     Dosage: 500 MG/M2
  5. ANTIEMETICS [Concomitant]
  6. MAJOR MIX [Concomitant]
  7. ANTI DIARRHEAL [Concomitant]

REACTIONS (5)
  - ABDOMINAL PAIN [None]
  - ANOREXIA [None]
  - GENERAL PHYSICAL HEALTH DETERIORATION [None]
  - LETHARGY [None]
  - X-RAY GASTROINTESTINAL TRACT ABNORMAL [None]
